FAERS Safety Report 13577101 (Version 1)
Quarter: 2017Q2

REPORT INFORMATION
  Report Type: Spontaneous
  Country: US (occurrence: US)
  Receive Date: 20170524
  Receipt Date: 20170524
  Transmission Date: 20170830
  Serious: No
  Sender: FDA-Public Use
  Company Number: US-PFIZER INC-2017225118

PATIENT
  Age: 44 Year
  Sex: Male
  Weight: 111.1 kg

DRUGS (3)
  1. VIAGRA [Suspect]
     Active Substance: SILDENAFIL CITRATE
     Indication: ERECTILE DYSFUNCTION
     Dosage: 100MG ONE TABLET AS NEEDED 30 MINUTES TO 1 HOUR BEFORE HE WILL BE NEEDING IT
     Route: 048
     Dates: start: 2016
  2. GEMFIBROZIL. [Concomitant]
     Active Substance: GEMFIBROZIL
     Indication: BLOOD TRIGLYCERIDES
     Dosage: 500MG, ONE PILL TWICE A DAY
  3. METFORMIN [Concomitant]
     Active Substance: METFORMIN HYDROCHLORIDE
     Indication: DIABETES MELLITUS
     Dosage: 500MG, TWO PILLS THREE TIMES A DAY

REACTIONS (1)
  - Drug effect incomplete [Unknown]
